FAERS Safety Report 6385137-2 (Version None)
Quarter: 2009Q4

REPORT INFORMATION
  Report Type: 
  Country: None (occurrence: None)
  Receive Date: 20091002
  Receipt Date: 20090921
  Transmission Date: 20100525
  Serious: Yes (Hospitalization)
  Sender: FDA-Public Use
  Company Number: US-MYLANLABS-2009S1016727

PATIENT
  Age: 5 Year
  Sex: Male

DRUGS (2)
  1. ACTOS [Suspect]
     Route: 048
  2. METFORMIN HCL [Suspect]
     Route: 048

REACTIONS (2)
  - ACCIDENTAL EXPOSURE [None]
  - HYPOGLYCAEMIA [None]
